FAERS Safety Report 10590467 (Version 4)
Quarter: 2014Q4

REPORT INFORMATION
  Report Type: Spontaneous
  Country: IT (occurrence: IT)
  Receive Date: 20141118
  Receipt Date: 20141229
  Transmission Date: 20150529
  Serious: Yes (Life-Threatening)
  Sender: FDA-Public Use
  Company Number: IT-PFIZER INC-2014316414

PATIENT
  Age: 56 Year
  Sex: Female

DRUGS (1)
  1. PIROXICAM. [Suspect]
     Active Substance: PIROXICAM
     Indication: ARTHRALGIA
     Dosage: 2 DF, DAILY
     Route: 048
     Dates: start: 20141013, end: 20141022

REACTIONS (3)
  - Hepatitis [Not Recovered/Not Resolved]
  - Acute hepatic failure [Not Recovered/Not Resolved]
  - Coma hepatic [Not Recovered/Not Resolved]

NARRATIVE: CASE EVENT DATE: 20141023
